FAERS Safety Report 25553801 (Version 1)
Quarter: 2025Q3

REPORT INFORMATION
  Report Type: Spontaneous
  Country: US (occurrence: None)
  Receive Date: 20250714
  Receipt Date: 20250714
  Transmission Date: 20251020
  Serious: Yes (Other)
  Sender: FDA-CTU
  Company Number: None

PATIENT
  Age: 34 Year
  Sex: Female
  Weight: 120.15 kg

DRUGS (1)
  1. CANDESARTAN [Suspect]
     Active Substance: CANDESARTAN
     Indication: Blood pressure increased
     Dosage: 1 TABLET AT BEDTIME ORAL
     Route: 048
     Dates: start: 20250625

REACTIONS (2)
  - Muscle spasms [None]
  - Menstruation delayed [None]

NARRATIVE: CASE EVENT DATE: 20250703
